FAERS Safety Report 6397103-1 (Version None)
Quarter: 2009Q4

REPORT INFORMATION
  Report Type: 
  Country: None (occurrence: None)
  Receive Date: 20091012
  Receipt Date: 20091005
  Transmission Date: 20100525
  Serious: Yes (Congenital Anomaly)
  Sender: FDA-Public Use
  Company Number: A0681528A

PATIENT
  Sex: Female
  Weight: 3.6 kg

DRUGS (15)
  1. PAXIL [Suspect]
     Indication: DEPRESSION
     Dosage: 30MG SEE DOSAGE TEXT
     Dates: start: 20020601, end: 20030701
  2. VITAMIN AND MINERAL PRENATAL SUPPLEMENT W/ FOLIC ACID CAP [Concomitant]
  3. PROZAC [Concomitant]
  4. LORTAB [Concomitant]
     Dates: start: 20021119
  5. TYLENOL (CAPLET) [Concomitant]
  6. PROCARDIA [Concomitant]
  7. TERBUTALINE SULFATE [Concomitant]
     Dates: start: 20020901
  8. ANTIEMETIC [Concomitant]
  9. ZANTAC [Concomitant]
  10. IV HYDRATION [Concomitant]
  11. REGLAN [Concomitant]
  12. PROTONIX [Concomitant]
  13. PHENERGAN [Concomitant]
  14. WELLBUTRIN [Concomitant]
     Dates: start: 20020101, end: 20020701
  15. ZOFRAN [Concomitant]

REACTIONS (5)
  - CARDIAC MURMUR [None]
  - CONGENITAL ANOMALY [None]
  - DRUG EXPOSURE DURING PREGNANCY [None]
  - MITOCHONDRIAL MYOPATHY [None]
  - MYOPATHY [None]
